FAERS Safety Report 18435966 (Version 1)
Quarter: 2020Q4

REPORT INFORMATION
  Report Type: Spontaneous
  Country: US (occurrence: US)
  Receive Date: 20201028
  Receipt Date: 20201028
  Transmission Date: 20210114
  Serious: No
  Sender: FDA-Public Use
  Company Number: None

PATIENT
  Age: 81 Year
  Sex: Female

DRUGS (1)
  1. BOSENTAN 125MG TABLETS 60/BO (TEVA) [Suspect]
     Active Substance: BOSENTAN

REACTIONS (2)
  - Liver function test increased [None]
  - Therapy interrupted [None]

NARRATIVE: CASE EVENT DATE: 20200910
